FAERS Safety Report 24268027 (Version 4)
Quarter: 2025Q2

REPORT INFORMATION
  Report Type: Spontaneous
  Country: US (occurrence: US)
  Receive Date: 20240830
  Receipt Date: 20250624
  Transmission Date: 20250717
  Serious: No
  Sender: PFIZER
  Company Number: US-PFIZER INC-202400244507

PATIENT
  Age: 8 Year
  Sex: Female
  Weight: 23.59 kg

DRUGS (2)
  1. GENOTROPIN [Suspect]
     Active Substance: SOMATROPIN
     Indication: Small for dates baby
     Dosage: 1 MG, DAILY
  2. GENOTROPIN [Suspect]
     Active Substance: SOMATROPIN
     Indication: Growth retardation
     Dosage: 1.2 INJECTION NIGHTLY

REACTIONS (5)
  - Device information output issue [Unknown]
  - Device mechanical issue [Unknown]
  - Device use error [Unknown]
  - Needle issue [Unknown]
  - Drug dose omission by device [Unknown]
